FAERS Safety Report 9226408 (Version 1)
Quarter: 2013Q2

REPORT INFORMATION
  Report Type: Spontaneous
  Country: IT (occurrence: IT)
  Receive Date: 20130411
  Receipt Date: 20130411
  Transmission Date: 20140414
  Serious: Yes (Hospitalization)
  Sender: FDA-Public Use
  Company Number: IT-MYLANLABS-2013S1007295

PATIENT
  Age: 80 Year
  Sex: Female

DRUGS (1)
  1. CITALOPRAM [Suspect]
     Indication: DEPRESSION
     Route: 048
     Dates: start: 20121101

REACTIONS (3)
  - Hyponatraemia [Recovered/Resolved]
  - Syncope [Recovered/Resolved]
  - Sopor [Recovered/Resolved]
